FAERS Safety Report 9433163 (Version 2)
Quarter: 2013Q4

REPORT INFORMATION
  Report Type: Spontaneous
  Country: US (occurrence: US)
  Receive Date: 20130731
  Receipt Date: 20131016
  Transmission Date: 20140711
  Serious: Yes (Hospitalization, Other)
  Sender: FDA-Public Use
  Company Number: US-GLAXOSMITHKLINE-A1035472A

PATIENT
  Age: 67 Year
  Sex: Male
  Weight: 87.7 kg

DRUGS (8)
  1. VOTRIENT [Suspect]
     Indication: MALIGNANT URINARY TRACT NEOPLASM
     Dosage: 800MG PER DAY
     Route: 048
     Dates: start: 20130419, end: 20130730
  2. LISINOPRIL [Suspect]
     Indication: PRODUCT USED FOR UNKNOWN INDICATION
     Dosage: 20MG PER DAY
     Route: 065
     Dates: start: 20130730
  3. MEGACE [Concomitant]
  4. BETHANECHOL CHLORIDE [Concomitant]
  5. LORTAB [Concomitant]
  6. METHADONE [Concomitant]
  7. SPIRIVA [Concomitant]
  8. DIURETIC [Concomitant]

REACTIONS (12)
  - Haemorrhage [Recovering/Resolving]
  - Rash [Recovering/Resolving]
  - Blood blister [Recovering/Resolving]
  - Rash macular [Recovering/Resolving]
  - Sunburn [Recovering/Resolving]
  - Glomerular filtration rate abnormal [Recovering/Resolving]
  - Oedema [Unknown]
  - Renal failure [Unknown]
  - Blood potassium increased [Unknown]
  - Renal failure acute [Recovered/Resolved]
  - Joint swelling [Unknown]
  - Dyspnoea exertional [Unknown]
